FAERS Safety Report 9785622 (Version 1)
Quarter: 2013Q4

REPORT INFORMATION
  Report Type: Spontaneous
  Country: US (occurrence: None)
  Receive Date: 20131226
  Receipt Date: 20131226
  Transmission Date: 20140711
  Serious: No
  Sender: FDA-Public Use
  Company Number: None

PATIENT
  Age: 27 Year
  Sex: Male

DRUGS (1)
  1. TAMIFLU [Suspect]
     Indication: CONGENITAL MEGACOLON
     Dosage: ONE CAPSULE  TWICE DAILY  TAKEN BY MOUTH
     Route: 048
     Dates: start: 20131219, end: 20131224

REACTIONS (3)
  - Aggression [None]
  - Mania [None]
  - Unevaluable event [None]
